FAERS Safety Report 16989375 (Version 1)
Quarter: 2019Q4

REPORT INFORMATION
  Report Type: Report from Study
  Country: CA (occurrence: CA)
  Receive Date: 20191104
  Receipt Date: 20191104
  Transmission Date: 20200122
  Serious: Yes (Death, Hospitalization, Other)
  Sender: FDA-Public Use
  Company Number: CA-PFIZER INC-2019468565

PATIENT
  Age: 54 Year
  Sex: Female

DRUGS (17)
  1. LOVENOX [LEVOFLOXACIN] [Concomitant]
     Active Substance: LEVOFLOXACIN
     Dosage: UNK
     Route: 058
  2. LORAZEPAM. [Suspect]
     Active Substance: LORAZEPAM
     Indication: NERVOUSNESS
     Dosage: 0.5 MG, UNK
     Route: 065
  3. VITAMIN D3 [Suspect]
     Active Substance: CHOLECALCIFEROL
     Dosage: 1000 IU, 1X/DAY
     Route: 048
  4. CLARITIN [CLARITHROMYCIN] [Concomitant]
     Active Substance: CLARITHROMYCIN
     Dosage: UNK, 1X/DAY
     Route: 048
  5. MICARDIS [Concomitant]
     Active Substance: TELMISARTAN
     Dosage: UNK
     Route: 048
  6. METFORMIN [Suspect]
     Active Substance: METFORMIN HYDROCHLORIDE
     Dosage: 250 MG, 3X/DAY
     Route: 048
  7. ANASTROZOLE. [Concomitant]
     Active Substance: ANASTROZOLE
     Dosage: 1 MG, UNK
     Route: 048
  8. ENOXAPARIN SODIUM. [Concomitant]
     Active Substance: ENOXAPARIN SODIUM
     Dosage: UNK
  9. OCTREOTIDE. [Concomitant]
     Active Substance: OCTREOTIDE
     Dosage: 150 UG, 2X/DAY
     Route: 058
  10. XARELTO [Concomitant]
     Active Substance: RIVAROXABAN
     Dosage: UNK
  11. LORAZEPAM. [Suspect]
     Active Substance: LORAZEPAM
     Indication: ANXIETY
  12. CLOPIDOGREL BISULFATE. [Concomitant]
     Active Substance: CLOPIDOGREL BISULFATE
     Dosage: UNK
  13. SULFAMETHOXAZOLE/TRIMETHOPRIM [Concomitant]
     Dosage: UNK, 2X/DAY
     Route: 048
  14. SANDOSTATIN [Suspect]
     Active Substance: OCTREOTIDE ACETATE
     Dosage: 30 MG, MONTHLY
     Route: 030
  15. SPIRIVA [Concomitant]
     Active Substance: TIOTROPIUM BROMIDE MONOHYDRATE
     Dosage: 18 UG, 1X/DAY
     Route: 055
  16. SANDOSTATIN [Suspect]
     Active Substance: OCTREOTIDE ACETATE
     Indication: CARCINOID SYNDROME
     Dosage: 20 MG, MONTHLY
     Route: 030
  17. ACETYLSALICYLIC ACID [Concomitant]
     Active Substance: ASPIRIN
     Dosage: 80 MG, 1X/DAY
     Route: 048

REACTIONS (20)
  - Gait disturbance [Fatal]
  - Haemoptysis [Fatal]
  - Myocardial infarction [Fatal]
  - Respiratory rate increased [Fatal]
  - Drug hypersensitivity [Fatal]
  - Nervousness [Fatal]
  - Oxygen saturation decreased [Fatal]
  - Pneumonia [Fatal]
  - Dyspnoea [Fatal]
  - Injection site swelling [Fatal]
  - Pericardial effusion [Fatal]
  - Productive cough [Fatal]
  - Asthma [Fatal]
  - Blood pressure decreased [Fatal]
  - Injection site pain [Fatal]
  - Blood glucose decreased [Fatal]
  - Chest pain [Fatal]
  - Phlebitis [Fatal]
  - Somnolence [Fatal]
  - Anxiety [Fatal]
